FAERS Safety Report 6841476-X (Version None)
Quarter: 2010Q3

REPORT INFORMATION
  Report Type: 
  Country: None (occurrence: None)
  Receive Date: 20100714
  Receipt Date: 20070703
  Transmission Date: 20110219
  Serious: No
  Sender: FDA-Public Use
  Company Number: US-PFIZER INC-2007056114

PATIENT
  Sex: Female
  Weight: 53.636 kg

DRUGS (6)
  1. CHANTIX [Suspect]
     Indication: SMOKING CESSATION THERAPY
     Route: 048
     Dates: start: 20070501, end: 20070601
  2. ATENOLOL [Concomitant]
  3. PREMARIN [Concomitant]
  4. VITAMIN E [Concomitant]
  5. MULTI-VITAMINS [Concomitant]
  6. LAXATIVES [Concomitant]

REACTIONS (6)
  - ASTHENIA [None]
  - BRONCHITIS [None]
  - FATIGUE [None]
  - MALAISE [None]
  - NAUSEA [None]
  - VOMITING [None]
